FAERS Safety Report 9741387 (Version 2)
Quarter: 2014Q1

REPORT INFORMATION
  Report Type: Spontaneous
  Country: CA (occurrence: CA)
  Receive Date: 20131209
  Receipt Date: 20140312
  Transmission Date: 20141002
  Serious: Yes (Other)
  Sender: FDA-Public Use
  Company Number: CA-ELI_LILLY_AND_COMPANY-CA201312000475

PATIENT
  Age: 70 Year
  Sex: Male
  Weight: 79.37 kg

DRUGS (1)
  1. CIALIS [Suspect]
     Indication: ERECTILE DYSFUNCTION
     Dosage: 5 MG, QD
     Route: 065
     Dates: start: 2013

REACTIONS (2)
  - Blindness transient [Recovered/Resolved]
  - Vision blurred [Recovered/Resolved]
